FAERS Safety Report 23099624 (Version 3)
Quarter: 2023Q4

REPORT INFORMATION
  Report Type: Report from Study
  Country: US (occurrence: US)
  Receive Date: 20231024
  Receipt Date: 20231113
  Transmission Date: 20240110
  Serious: Yes (Other)
  Sender: FDA-Public Use
  Company Number: US-BIOVITRUM-2023-US-014758

PATIENT
  Age: 82 Year
  Sex: Female

DRUGS (1)
  1. KINERET [Suspect]
     Active Substance: ANAKINRA
     Indication: Still^s disease
     Dosage: 100MG, DAILY
     Route: 058
     Dates: start: 20230909

REACTIONS (11)
  - Cataract [Unknown]
  - Off label use [Not Recovered/Not Resolved]
  - Intentional dose omission [Recovered/Resolved]
  - Injection site reaction [Recovering/Resolving]
  - Injection site erythema [Recovering/Resolving]
  - Injection site inflammation [Recovering/Resolving]
  - Injection site pruritus [Recovering/Resolving]
  - Pruritus [Not Recovered/Not Resolved]
  - Night sweats [Not Recovered/Not Resolved]
  - Erythema [Not Recovered/Not Resolved]
  - Hypersensitivity [Unknown]

NARRATIVE: CASE EVENT DATE: 20230909
